FAERS Safety Report 8560271 (Version 4)
Quarter: 2012Q4

REPORT INFORMATION
  Report Type: Spontaneous
  Country: US (occurrence: None)
  Receive Date: 20120504
  Receipt Date: 20121109
  Transmission Date: 20130627
  Serious: Yes (Life-Threatening, Hospitalization, Congenital Anomaly, Other)
  Sender: FDA-Public Use
  Company Number: AUR-APL-2012-01993

PATIENT
  Sex: Male
  Weight: 3.22 kg

DRUGS (17)
  1. SUMATRIPTAN [Suspect]
     Indication: PRODUCT USED FOR UNKNOWN INDICATION
     Dosage: TRANSPLACENTAL
     Route: 064
     Dates: start: 20100325
  2. TOPIRAMATE [Suspect]
     Indication: MIGRAINE
     Dosage: (25 MG, 2 IN 1 D)
     Route: 064
     Dates: start: 20100315, end: 20100415
  3. TOPIRAMATE [Suspect]
     Indication: MIGRAINE
     Dosage: (25 mg,2 in 1 D)
     Route: 064
  4. TOPIRAMATE [Suspect]
     Indication: MIGRAINE
     Dosage: (25 mg,2 in 1 D)
     Route: 064
  5. TOPIRAMATE [Suspect]
     Indication: MIGRAINE
     Dosage: (50 mg,4 in 1 D)
     Route: 064
  6. CYCLOBENZAPRINE [Suspect]
     Indication: SCIATIC NERVE INJURY
     Dosage: (10 MG, 3 IN 1 D)
     Route: 064
  7. CETIRIZINE [Suspect]
     Indication: PRODUCT USED FOR UNKNOWN INDICATION
     Route: 064
     Dates: start: 20100325
  8. NAPROXEN [Suspect]
     Indication: PRODUCT USED FOR UNKNOWN INDICATION
     Route: 064
     Dates: start: 20100325
  9. AMOXICILLIN [Suspect]
     Indication: PRODUCT USED FOR UNKNOWN INDICATION
     Route: 064
     Dates: start: 20100325
  10. AZITHROMYCIN [Suspect]
     Indication: PRODUCT USED FOR UNKNOWN INDICATION
     Route: 064
     Dates: start: 20100325
  11. IBUPROFEN [Suspect]
     Indication: PRODUCT USED FOR UNKNOWN INDICATION
     Route: 064
     Dates: start: 20100325
  12. NITROFURANTOIN [Suspect]
     Indication: PRODUCT USED FOR UNKNOWN INDICATION
     Dosage: TRANSPLACENTAL
     Route: 064
  13. UNSPECIFIED INGREDIENT [Suspect]
     Indication: PRODUCT USED FOR UNKNOWN INDICATION
     Route: 064
  14. CODEINE PHOSPHATE\GUAIFENESIN [Suspect]
     Indication: PRODUCT USED FOR UNKNOWN INDICATION
     Route: 064
     Dates: start: 20100325
  15. FLUTICASONE PROPIONATE [Suspect]
     Indication: PRODUCT USED FOR UNKNOWN INDICATION
     Route: 064
     Dates: start: 20100325
  16. HYDROCODONE BITARTRATE AND ACETAMINOPHEN [Suspect]
     Indication: PRODUCT USED FOR UNKNOWN INDICATION
     Route: 064
     Dates: start: 20100325
  17. OLOPATADINE HYDROCHLORIDE [Suspect]
     Indication: PRODUCT USED FOR UNKNOWN INDICATION
     Route: 064
     Dates: start: 20100325

REACTIONS (23)
  - Maternal drugs affecting foetus [None]
  - Cleft palate [None]
  - Craniosynostosis [None]
  - Respiratory disorder neonatal [None]
  - Deafness congenital [None]
  - Dysmorphism [None]
  - Micrognathia [None]
  - Pierre Robin syndrome [None]
  - Myopia [None]
  - Hyperbilirubinaemia neonatal [None]
  - Developmental delay [None]
  - Ear infection [None]
  - Respiratory tract infection [None]
  - Cytogenetic abnormality [None]
  - Caesarean section [None]
  - Torticollis [None]
  - Laryngomalacia [None]
  - Pneumonia aspiration [None]
  - Respiratory distress [None]
  - Bronchial hyperreactivity [None]
  - Gastrooesophageal reflux disease [None]
  - Glaucoma [None]
  - Cytogenetic abnormality [None]
